FAERS Safety Report 5743974-9 (Version None)
Quarter: 2008Q2

REPORT INFORMATION
  Report Type: 
  Country: None (occurrence: None)
  Receive Date: 20080516
  Receipt Date: 20080516
  Transmission Date: 20081010
  Serious: Yes (Other)
  Sender: FDA-Public Use
  Company Number: None

PATIENT
  Sex: Male

DRUGS (1)
  1. DIGITEK 250 MCG BERTEK PHARM. [Suspect]
     Indication: CARDIAC DISORDER
     Dosage: ONE TABLET DAILY PO
     Route: 048
     Dates: start: 20060503, end: 20080113

REACTIONS (6)
  - CHROMATOPSIA [None]
  - FATIGUE [None]
  - LETHARGY [None]
  - PHARMACEUTICAL PRODUCT COMPLAINT [None]
  - SENSATION OF HEAVINESS [None]
  - THERAPEUTIC AGENT TOXICITY [None]
